FAERS Safety Report 9103366 (Version 6)
Quarter: 2013Q4

REPORT INFORMATION
  Report Type: Report from Study
  Country: BR (occurrence: BR)
  Receive Date: 20130219
  Receipt Date: 20131108
  Transmission Date: 20140711
  Serious: Yes (Other)
  Sender: FDA-Public Use
  Company Number: BR-AMGEN-BRACT2013010948

PATIENT
  Age: 66 Year
  Sex: Female
  Weight: 67.3 kg

DRUGS (14)
  1. ETANERCEPT [Suspect]
     Indication: RHEUMATOID ARTHRITIS
     Dosage: UNK
     Route: 065
  2. TOCILIZUMAB [Concomitant]
     Indication: RHEUMATOID ARTHRITIS
     Dosage: 162 MG QWK, AUTO INJECTOR METHOD
     Route: 058
     Dates: start: 20120208, end: 20130128
  3. METHOTREXATE SODIUM [Concomitant]
     Indication: RHEUMATOID ARTHRITIS
     Dosage: UNK
  4. LEFLUNOMIDE [Concomitant]
     Indication: RHEUMATOID ARTHRITIS
     Dosage: 20 MG, UNK
     Route: 048
     Dates: start: 2009
  5. PREDNISONE [Concomitant]
     Indication: RHEUMATOID ARTHRITIS
     Dosage: 10 MG, UNK
     Route: 048
     Dates: start: 2009
  6. CAPTOPRIL [Concomitant]
     Dosage: 25 MG, UNK
     Route: 048
     Dates: start: 2001
  7. METFORMIN HYDROCHLORIDE [Concomitant]
     Dosage: 850 MG, UNK
     Route: 048
     Dates: start: 2008
  8. OMEPRAZOLE [Concomitant]
     Dosage: 20 MG, UNK
     Route: 048
     Dates: start: 2001
  9. GLICLAZIDE [Concomitant]
     Dosage: 30 MG, UNK
     Route: 048
     Dates: start: 20110817
  10. CALCIUM CARBONATE [Concomitant]
     Dosage: 500 MG, UNK
     Route: 048
     Dates: start: 20110908
  11. VITAMIN D3 [Concomitant]
     Dosage: 400 IU
     Route: 048
     Dates: start: 20110908
  12. FLUOXETINE HYDROCHLORIDE [Concomitant]
     Dosage: 20 MG, UNK
     Route: 048
     Dates: start: 20120309
  13. CYCLOBENZAPRINE HYDROCHLORIDE [Concomitant]
     Dosage: 10 MG, UNK
     Route: 048
     Dates: start: 20120309
  14. MYLANTA PLUS                       /01043301/ [Concomitant]
     Dosage: 1 DF, UNK
     Route: 048
     Dates: start: 20120626

REACTIONS (1)
  - Anal squamous cell carcinoma [Recovered/Resolved]
